FAERS Safety Report 20900513 (Version 4)
Quarter: 2023Q1

REPORT INFORMATION
  Report Type: Other
  Country: CA (occurrence: None)
  Receive Date: 20220601
  Receipt Date: 20230216
  Transmission Date: 20230417
  Serious: No
  Sender: FDA-Public Use
  Company Number: CA-ROCHE-3108797

PATIENT
  Sex: Female

DRUGS (2)
  1. OCREVUS [Suspect]
     Active Substance: OCRELIZUMAB
     Indication: Relapsing-remitting multiple sclerosis
     Dosage: AT DAY 0 AND 14, THEN 600 MG EVERY 6 MONTHS.
     Route: 042
     Dates: start: 20210311
  2. PAXLOVID [Concomitant]
     Active Substance: NIRMATRELVIR\RITONAVIR

REACTIONS (1)
  - SARS-CoV-2 test positive [Not Recovered/Not Resolved]
